FAERS Safety Report 4908983-8 (Version None)
Quarter: 2006Q1

REPORT INFORMATION
  Report Type: 
  Country: None (occurrence: None)
  Receive Date: 20060210
  Receipt Date: 20060210
  Transmission Date: 20060701
  Serious: Yes (Life-Threatening, Disabling, Other)
  Sender: FDA-Public Use
  Company Number: None

PATIENT
  Age: 47 Year
  Sex: Female
  Weight: 54.4316 kg

DRUGS (1)
  1. KEPPRA [Suspect]
     Indication: CONVULSION
     Dosage: 2X DAY 500 MG
     Dates: start: 20050801

REACTIONS (6)
  - APHASIA [None]
  - HALLUCINATION [None]
  - HOMELESS [None]
  - MALAISE [None]
  - MENTAL IMPAIRMENT [None]
  - PARANOIA [None]
